FAERS Safety Report 7262414-4 (Version None)
Quarter: 2011Q1

REPORT INFORMATION
  Report Type: 
  Country: None (occurrence: None)
  Receive Date: 20110119
  Receipt Date: 20110110
  Transmission Date: 20110831
  Serious: Yes (Other)
  Sender: FDA-Public Use
  Company Number: JPI-P-013433

PATIENT
  Age: 50 Year
  Sex: Female
  Weight: 83.9154 kg

DRUGS (9)
  1. FUROSEMIDE [Concomitant]
  2. XYREM [Suspect]
     Indication: FIBROMYALGIA
     Dosage: ORAL, 4.5 GM (2.25 GM, 2 IN 1 D), ORAL; 9 GM (4.5 GM, 2 IN 1 D), ORAL
     Route: 048
     Dates: start: 20100830, end: 20100101
  3. XYREM [Suspect]
     Indication: FIBROMYALGIA
     Dosage: ORAL, 4.5 GM (2.25 GM, 2 IN 1 D), ORAL; 9 GM (4.5 GM, 2 IN 1 D), ORAL
     Route: 048
     Dates: start: 20100101, end: 20110110
  4. XYREM [Suspect]
     Indication: FIBROMYALGIA
     Dosage: ORAL, 4.5 GM (2.25 GM, 2 IN 1 D), ORAL; 9 GM (4.5 GM, 2 IN 1 D), ORAL
     Route: 048
     Dates: start: 20100401, end: 20100101
  5. BUPROPION HCL [Suspect]
     Indication: DEPRESSION
     Dosage: (150 MG)
     Dates: start: 20100801, end: 20110112
  6. ESCITALOPRAM OXALATE [Concomitant]
  7. AMPHETAMINE/DEXTROAMPHETAMINE [Suspect]
     Indication: PRODUCT USED FOR UNKNOWN INDICATION
     Dosage: 20 MG (20 MG, 1 IN 1 D); 10 MG (10 MG, 1 IN 1 D)
     Dates: start: 20101001, end: 20110111
  8. AMPHETAMINE/DEXTROAMPHETAMINE [Suspect]
     Indication: PRODUCT USED FOR UNKNOWN INDICATION
     Dosage: 20 MG (20 MG, 1 IN 1 D); 10 MG (10 MG, 1 IN 1 D)
     Dates: start: 20110112
  9. LISINOPRIL [Concomitant]

REACTIONS (9)
  - ARTHRALGIA [None]
  - UNRESPONSIVE TO STIMULI [None]
  - DYSKINESIA [None]
  - EYE MOVEMENT DISORDER [None]
  - OPISTHOTONUS [None]
  - PAIN [None]
  - CONDITION AGGRAVATED [None]
  - POOR QUALITY SLEEP [None]
  - BURNING SENSATION [None]
